FAERS Safety Report 8996556 (Version 1)
Quarter: 2013Q1

REPORT INFORMATION
  Report Type: Spontaneous
  Country: US (occurrence: US)
  Receive Date: 20130104
  Receipt Date: 20130104
  Transmission Date: 20140127
  Serious: Yes (Hospitalization, Other)
  Sender: FDA-Public Use
  Company Number: US-BAYER-2013-000447

PATIENT
  Age: 37 Year
  Sex: Female

DRUGS (9)
  1. YASMIN [Suspect]
  2. ATENOLOL [Concomitant]
     Dosage: 50 MG, BID
  3. SYNTHROID [Concomitant]
     Dosage: 0.112 MG, A DAY
  4. METFORMIN [Concomitant]
     Indication: WEIGHT DECREASED
     Dosage: 500 MG, BID
  5. CIPROFLOXACIN [Concomitant]
     Dosage: 500 MG, UNK
  6. NAPROXEN [Concomitant]
     Dosage: 500 MG, UNK
  7. BIAXIN XL [Concomitant]
     Dosage: 500 MG, UNK
  8. METHYLPREDNISOLONE [Concomitant]
     Dosage: 4 MG, UNK
  9. CLOBETASOL PROPIONATE [Concomitant]
     Dosage: 0.05 UNK, UNK

REACTIONS (3)
  - Pulmonary embolism [None]
  - Deep vein thrombosis [None]
  - Thrombophlebitis superficial [None]
